FAERS Safety Report 19061785 (Version 6)
Quarter: 2021Q3

REPORT INFORMATION
  Report Type: Spontaneous
  Country: US (occurrence: US)
  Receive Date: 20210326
  Receipt Date: 20210827
  Transmission Date: 20211014
  Serious: Yes (Hospitalization)
  Sender: FDA-Public Use
  Company Number: US-GLAXOSMITHKLINE-US2021069890

PATIENT
  Sex: Female

DRUGS (4)
  1. ZEJULA [Suspect]
     Active Substance: NIRAPARIB
     Dosage: 100 MG, QD
     Route: 048
     Dates: start: 20210617
  2. ZEJULA [Suspect]
     Active Substance: NIRAPARIB
     Dosage: 200 MG, QD
  3. ZEJULA [Suspect]
     Active Substance: NIRAPARIB
     Indication: FALLOPIAN TUBE CANCER
     Dosage: 200 MG, QD
     Dates: start: 20210324
  4. ZEJULA [Suspect]
     Active Substance: NIRAPARIB
     Dosage: 200 MG, QD
     Route: 048
     Dates: end: 20210517

REACTIONS (7)
  - Palpitations [Not Recovered/Not Resolved]
  - Wrong technique in product usage process [Unknown]
  - Haemoglobin decreased [Recovered/Resolved]
  - Constipation [Unknown]
  - Platelet count decreased [Recovered/Resolved]
  - Psoriasis [Not Recovered/Not Resolved]
  - Product use complaint [Unknown]
